FAERS Safety Report 4725193-8 (Version None)
Quarter: 2005Q3

REPORT INFORMATION
  Report Type: 
  Country: None (occurrence: None)
  Receive Date: 20050721
  Receipt Date: 20050610
  Transmission Date: 20060218
  Serious: No
  Sender: FDA-Public Use
  Company Number: 2005SP001340

PATIENT
  Age: 85 Year
  Sex: Female
  Weight: 53.5244 kg

DRUGS (3)
  1. LUNESTA [Suspect]
     Indication: INSOMNIA
     Dosage: 1MG; IX; ORAL
     Route: 048
     Dates: start: 20050608, end: 20050608
  2. SYNTHROID [Concomitant]
  3. THYROID TAB [Concomitant]

REACTIONS (2)
  - DRUG INEFFECTIVE [None]
  - INSOMNIA [None]
